FAERS Safety Report 5467729-8 (Version None)
Quarter: 2007Q3

REPORT INFORMATION
  Report Type: 
  Country: None (occurrence: None)
  Receive Date: 20070814
  Receipt Date: 20070605
  Transmission Date: 20080115
  Serious: No
  Sender: FDA-Public Use
  Company Number: 200713147US

PATIENT
  Age: 55 Year
  Sex: Female

DRUGS (10)
  1. APIDRA [Suspect]
     Indication: TYPE 2 DIABETES MELLITUS
     Dosage: 15 U TID; INJ
     Dates: start: 20070424
  2. OPTICLIK [Suspect]
     Indication: TYPE 2 DIABETES MELLITUS
     Dates: start: 20070424
  3. INSULIN DETEMIR (LEVEMIR) [Concomitant]
  4. NITROFURANTOIN (UREX 00024401/) [Concomitant]
  5. XANAX [Concomitant]
  6. NITROFURANTOIN (MACROBID /00024401/) [Concomitant]
  7. ACETYLCARNITINE HYDROCHLORIDE (NEUROTIN /00949292/) [Concomitant]
  8. LISINOPRIL [Concomitant]
  9. DULOXETINE HYDROCHLORIDE (CYMBALTA) [Concomitant]
  10. RABEPRAZOLE SODIUM (ACIPHEX) [Concomitant]

REACTIONS (1)
  - BLOOD GLUCOSE INCREASED [None]
